FAERS Safety Report 7943966-5 (Version None)
Quarter: 2011Q4

REPORT INFORMATION
  Report Type: 
  Country: None (occurrence: None)
  Receive Date: 20111128
  Receipt Date: 20111117
  Transmission Date: 20120403
  Serious: Yes (Other)
  Sender: FDA-Public Use
  Company Number: US-ROCHE-GNE324040

PATIENT
  Sex: Female
  Weight: 124.85 kg

DRUGS (4)
  1. SYMBICORT [Suspect]
     Indication: PRODUCT USED FOR UNKNOWN INDICATION
  2. MEDROL [Suspect]
     Indication: PRODUCT USED FOR UNKNOWN INDICATION
  3. XOLAIR [Suspect]
     Indication: ASTHMA
     Route: 058
     Dates: start: 20110714
  4. SINGULAIR [Suspect]
     Indication: PRODUCT USED FOR UNKNOWN INDICATION

REACTIONS (1)
  - STILLBIRTH [None]
